FAERS Safety Report 9146056 (Version 1)
Quarter: 2013Q1

REPORT INFORMATION
  Report Type: Spontaneous
  Country: US (occurrence: None)
  Receive Date: 20130129
  Receipt Date: 20130129
  Transmission Date: 20140127
  Serious: Yes (Death, Disabling, Other)
  Sender: FDA-Public Use
  Company Number: REG-2012-136

PATIENT
  Sex: Female

DRUGS (1)
  1. METOCLOPRAMIDE [Suspect]
     Dosage: 2007  TO  UNK
     Dates: start: 2007

REACTIONS (5)
  - Multiple injuries [None]
  - Nervous system disorder [None]
  - Extrapyramidal disorder [None]
  - Tardive dyskinesia [None]
  - Pain [None]
